FAERS Safety Report 24943497 (Version 1)
Quarter: 2025Q1

REPORT INFORMATION
  Report Type: Spontaneous
  Country: FR (occurrence: FR)
  Receive Date: 20250207
  Receipt Date: 20250207
  Transmission Date: 20250409
  Serious: Yes (Hospitalization)
  Sender: ORGANON
  Company Number: None

PATIENT
  Age: 80 Year
  Sex: Female
  Weight: 88 kg

DRUGS (6)
  1. MIRTAZAPINE [Suspect]
     Active Substance: MIRTAZAPINE
     Indication: Depression
     Route: 048
  2. ZUCLOPENTHIXOL ACETATE [Suspect]
     Active Substance: ZUCLOPENTHIXOL ACETATE
     Indication: Delirium
     Route: 048
  3. TRIMEPRAZINE [Suspect]
     Active Substance: TRIMEPRAZINE
     Indication: Delirium
     Route: 048
  4. VALPROMIDE [Suspect]
     Active Substance: VALPROMIDE
     Indication: Delirium
     Route: 048
  5. VALIUM [Suspect]
     Active Substance: DIAZEPAM
     Indication: Anxiety
     Route: 048
  6. TRAMADOL HYDROCHLORIDE [Suspect]
     Active Substance: TRAMADOL HYDROCHLORIDE
     Indication: Pain
     Route: 048

REACTIONS (1)
  - Intestinal pseudo-obstruction [Not Recovered/Not Resolved]

NARRATIVE: CASE EVENT DATE: 20250121
